FAERS Safety Report 16534936 (Version 3)
Quarter: 2022Q3

REPORT INFORMATION
  Report Type: Other
  Country: US (occurrence: None)
  Receive Date: 20190705
  Receipt Date: 20220720
  Transmission Date: 20221026
  Serious: Yes (Other)
  Sender: FDA-Public Use
  Company Number: US-ROCHE-2344571

PATIENT
  Age: 50 Year
  Sex: Male
  Weight: 86.260 kg

DRUGS (14)
  1. OCREVUS [Suspect]
     Active Substance: OCRELIZUMAB
     Indication: Secondary progressive multiple sclerosis
     Route: 042
     Dates: start: 201709
  2. OCREVUS [Suspect]
     Active Substance: OCRELIZUMAB
     Indication: Relapsing-remitting multiple sclerosis
     Route: 065
     Dates: start: 20190318
  3. OCREVUS [Suspect]
     Active Substance: OCRELIZUMAB
     Route: 042
  4. OCREVUS [Suspect]
     Active Substance: OCRELIZUMAB
     Route: 042
     Dates: start: 2017
  5. OXYCODONE [Concomitant]
     Active Substance: OXYCODONE
     Indication: Pain
     Dosage: 10MG IN THE MORNING AND 10MG AT NIGHT ; ONGOING : YES
     Dates: start: 20130101
  6. OXYCONTIN [Concomitant]
     Active Substance: OXYCODONE HYDROCHLORIDE
     Indication: Pain
     Dosage: 15MG IN THE MORNING AND 15 MG AT NIGHT
     Dates: start: 20130101
  7. MYRBETRIQ [Concomitant]
     Active Substance: MIRABEGRON
     Dosage: ONCE DAILY
     Dates: start: 20140101
  8. DULOXETINE [Concomitant]
     Active Substance: DULOXETINE
     Indication: Neuropathy peripheral
     Dosage: ONCE DAILY
     Dates: start: 20140101
  9. BACLOFEN [Concomitant]
     Active Substance: BACLOFEN
     Indication: Muscle spasms
     Dosage: 2 TABS IN THE MORNING AND 2 TABS AT NIGHT
     Dates: start: 20140101
  10. AMITIZA [Concomitant]
     Active Substance: LUBIPROSTONE
     Dates: start: 20180101
  11. MAYZENT [Concomitant]
     Active Substance: SIPONIMOD
     Indication: Multiple sclerosis
     Route: 048
     Dates: start: 2019
  12. ZOLOFT [Concomitant]
     Active Substance: SERTRALINE HYDROCHLORIDE
     Indication: Depression
  13. CARBAMAZEPINE [Concomitant]
     Active Substance: CARBAMAZEPINE
     Route: 048
  14. BACLOFEN [Concomitant]
     Active Substance: BACLOFEN

REACTIONS (14)
  - Systemic infection [Not Recovered/Not Resolved]
  - Tachycardia [Not Recovered/Not Resolved]
  - Blood testosterone decreased [Not Recovered/Not Resolved]
  - Prostatomegaly [Not Recovered/Not Resolved]
  - Arteriosclerosis [Not Recovered/Not Resolved]
  - Constipation [Not Recovered/Not Resolved]
  - Oedema [Not Recovered/Not Resolved]
  - Prostate cancer [Unknown]
  - Swelling [Not Recovered/Not Resolved]
  - Otorrhoea [Unknown]
  - Oxygen saturation decreased [Unknown]
  - Heart rate increased [Recovered/Resolved]
  - Urticaria [Recovered/Resolved]
  - Off label use [Unknown]

NARRATIVE: CASE EVENT DATE: 20190301
